FAERS Safety Report 6858892-2 (Version None)
Quarter: 2010Q3

REPORT INFORMATION
  Report Type: 
  Country: None (occurrence: None)
  Receive Date: 20100719
  Receipt Date: 20080219
  Transmission Date: 20110219
  Serious: No
  Sender: FDA-Public Use
  Company Number: US-PFIZER INC-2008017321

PATIENT
  Sex: Male
  Weight: 75 kg

DRUGS (2)
  1. CHANTIX [Suspect]
     Indication: SMOKING CESSATION THERAPY
     Route: 048
     Dates: start: 20070601, end: 20070801
  2. LISINOPRIL [Concomitant]
     Indication: HYPERTENSION

REACTIONS (4)
  - ABDOMINAL DISTENSION [None]
  - ABNORMAL DREAMS [None]
  - CONSTIPATION [None]
  - INCORRECT DOSE ADMINISTERED [None]
